FAERS Safety Report 21827041 (Version 1)
Quarter: 2023Q1

REPORT INFORMATION
  Report Type: Report from Study
  Country: US (occurrence: US)
  Receive Date: 20230106
  Receipt Date: 20230106
  Transmission Date: 20230417
  Serious: No
  Sender: FDA-Public Use
  Company Number: US-ABBVIE-4259585

PATIENT
  Age: 47 Year
  Sex: Female

DRUGS (1)
  1. HUMIRA [Suspect]
     Active Substance: ADALIMUMAB
     Indication: Rheumatoid arthritis
     Dosage: CITRATE FREE
     Route: 058
     Dates: start: 20221221

REACTIONS (10)
  - Feeling abnormal [Recovered/Resolved]
  - Muscle tightness [Recovered/Resolved]
  - Pharyngitis streptococcal [Recovered/Resolved]
  - Muscle twitching [Recovered/Resolved]
  - Influenza like illness [Unknown]
  - Cough [Unknown]
  - Respiratory tract congestion [Unknown]
  - Pyrexia [Unknown]
  - Pain [Unknown]
  - White blood cell count abnormal [Unknown]

NARRATIVE: CASE EVENT DATE: 20221222
